FAERS Safety Report 8190234-5 (Version None)
Quarter: 2012Q1

REPORT INFORMATION
  Report Type: 
  Country: None (occurrence: None)
  Receive Date: 20120307
  Receipt Date: 20120227
  Transmission Date: 20120608
  Serious: Yes (Hospitalization)
  Sender: FDA-Public Use
  Company Number: DE-B.I. PHARMACEUTICALS,INC./RIDGEFIELD-2012-DE-00570DE

PATIENT
  Age: 68 Year
  Sex: Female
  Weight: 50 kg

DRUGS (6)
  1. VITAMIN D + CALCIUM [Concomitant]
  2. PRADAXA [Suspect]
     Dosage: 220 MG
     Dates: start: 20120222
  3. PRADAXA [Suspect]
     Indication: ATRIAL FIBRILLATION
     Dosage: 300 MG
     Dates: start: 20111001, end: 20120222
  4. HAWTHORN [Concomitant]
  5. DIGITALIS THERAPY [Concomitant]
  6. VITAMIN D [Concomitant]
     Dosage: 2000 U

REACTIONS (7)
  - DECREASED APPETITE [None]
  - HAEMOPTYSIS [None]
  - WEIGHT DECREASED [None]
  - FATIGUE [None]
  - DIARRHOEA [None]
  - DISTURBANCE IN ATTENTION [None]
  - ASTHENIA [None]
